FAERS Safety Report 9272758 (Version 4)
Quarter: 2016Q2

REPORT INFORMATION
  Report Type: Spontaneous
  Country: US (occurrence: US)
  Receive Date: 20130506
  Receipt Date: 20160408
  Transmission Date: 20160815
  Serious: Yes (Other)
  Sender: FDA-Public Use
  Company Number: US-009507513-1305USA000097

PATIENT
  Sex: Male

DRUGS (2)
  1. PROPECIA [Suspect]
     Active Substance: FINASTERIDE
     Indication: ALOPECIA
  2. PROPECIA [Suspect]
     Active Substance: FINASTERIDE
     Indication: ANDROGENETIC ALOPECIA
     Dosage: 1 MG, UNKNOWN
     Route: 048
     Dates: start: 1998, end: 2011

REACTIONS (21)
  - Seasonal affective disorder [Unknown]
  - Pain [Unknown]
  - Bipolar disorder [Unknown]
  - Sleep apnoea syndrome [Unknown]
  - Sexual dysfunction [Not Recovered/Not Resolved]
  - Anxiety [Unknown]
  - Insomnia [Unknown]
  - Hypogonadism [Not Recovered/Not Resolved]
  - Erectile dysfunction [Not Recovered/Not Resolved]
  - Anorgasmia [Unknown]
  - Ulcer [Unknown]
  - Mental disorder [Unknown]
  - Polycythaemia [Unknown]
  - Loss of libido [Unknown]
  - Aptyalism [Unknown]
  - Suicidal ideation [Unknown]
  - Asthenia [Unknown]
  - Depression [Not Recovered/Not Resolved]
  - Cognitive disorder [Not Recovered/Not Resolved]
  - Chronic sinusitis [Unknown]
  - Rhinitis allergic [Unknown]

NARRATIVE: CASE EVENT DATE: 2001
